FAERS Safety Report 23348385 (Version 1)
Quarter: 2023Q4

REPORT INFORMATION
  Report Type: Report from Study
  Country: US (occurrence: US)
  Receive Date: 20231228
  Receipt Date: 20231228
  Transmission Date: 20240110
  Serious: Yes (Hospitalization)
  Sender: FDA-Public Use
  Company Number: US-BIOGEN-2020BI00824778

PATIENT
  Age: 47 Year
  Sex: Male

DRUGS (2)
  1. TECFIDERA [Suspect]
     Active Substance: DIMETHYL FUMARATE
     Indication: Multiple sclerosis
     Route: 050
     Dates: start: 20130508, end: 20140227
  2. TECFIDERA [Suspect]
     Active Substance: DIMETHYL FUMARATE
     Route: 050
     Dates: start: 20140227, end: 20210503

REACTIONS (5)
  - Accident [Recovered/Resolved]
  - Patella fracture [Unknown]
  - Craniofacial fracture [Unknown]
  - Product dose omission issue [Unknown]
  - Atrophy [Unknown]

NARRATIVE: CASE EVENT DATE: 20191118
